FAERS Safety Report 4505202-1 (Version None)
Quarter: 2004Q4

REPORT INFORMATION
  Report Type: 
  Country: None (occurrence: None)
  Receive Date: 20041116
  Receipt Date: 20041101
  Transmission Date: 20050328
  Serious: Yes (Other)
  Sender: FDA-Public Use
  Company Number: E-04-030

PATIENT
  Sex: Male

DRUGS (3)
  1. HYDROCONE BITARTRATE AND ACETAMINOPHEN) TABS 5MG/500MG [Suspect]
     Indication: ANALGESIC EFFECT
     Dosage: TPO G4-6H  P.R.N.
     Dates: start: 20041001
  2. CLINDAMYCIN HCL [Concomitant]
  3. METRONIDAZOLE [Concomitant]

REACTIONS (6)
  - ABDOMINAL DISTENSION [None]
  - ANOREXIA [None]
  - DYSPHAGIA [None]
  - HAEMATOCHEZIA [None]
  - NAUSEA [None]
  - RASH [None]
